FAERS Safety Report 7587364-5 (Version None)
Quarter: 2011Q3

REPORT INFORMATION
  Report Type: 
  Country: None (occurrence: None)
  Receive Date: 20110701
  Receipt Date: 20110624
  Transmission Date: 20111222
  Serious: Yes (Other)
  Sender: FDA-Public Use
  Company Number: CN-ASTRAZENECA-2011SE38378

PATIENT
  Age: 78 Year
  Sex: Male

DRUGS (1)
  1. GEFITINIB [Suspect]
     Indication: LUNG ADENOCARCINOMA
     Route: 048
     Dates: start: 20090911, end: 20090923

REACTIONS (1)
  - ACUTE LUNG INJURY [None]
